FAERS Safety Report 6050331-7 (Version None)
Quarter: 2009Q1

REPORT INFORMATION
  Report Type: 
  Country: None (occurrence: None)
  Receive Date: 20090126
  Receipt Date: 20090115
  Transmission Date: 20090719
  Serious: Yes (Hospitalization)
  Sender: FDA-Public Use
  Company Number: FI-AMGEN-US329117

PATIENT
  Sex: Male
  Weight: 82 kg

DRUGS (7)
  1. ENBREL [Suspect]
     Indication: RHEUMATOID ARTHRITIS
     Route: 058
     Dates: start: 20081119, end: 20081203
  2. PREDNISOLONE [Concomitant]
     Route: 048
  3. COZAAR [Concomitant]
  4. DIGOXIN [Concomitant]
     Route: 048
  5. BISOPROLOL [Concomitant]
  6. MAREVAN [Concomitant]
  7. PODOPHYLLOTOXIN [Concomitant]

REACTIONS (7)
  - ANTINEUTROPHIL CYTOPLASMIC ANTIBODY INCREASED [None]
  - DIARRHOEA [None]
  - DYSPNOEA [None]
  - FEELING OF BODY TEMPERATURE CHANGE [None]
  - INJECTION SITE REACTION [None]
  - PETECHIAE [None]
  - PRURITUS [None]
